FAERS Safety Report 6369944-8 (Version None)
Quarter: 2009Q3

REPORT INFORMATION
  Report Type: 
  Country: None (occurrence: None)
  Receive Date: 20090923
  Receipt Date: 20070419
  Transmission Date: 20100115
  Serious: No
  Sender: FDA-Public Use
  Company Number: US-ASTRAZENECA-2006UW07083

PATIENT
  Age: 45 Year
  Sex: Female
  Weight: 131.5 kg

DRUGS (14)
  1. SEROQUEL [Suspect]
     Indication: DEPRESSION
     Dosage: 100 - 200 MG
     Route: 048
     Dates: start: 20030401, end: 20041201
  2. SEROQUEL [Suspect]
     Dosage: 100 - 200 MG
     Route: 048
     Dates: start: 20050101, end: 20051001
  3. SEROQUEL [Suspect]
     Route: 048
     Dates: start: 20030404
  4. SEROQUEL [Suspect]
     Route: 048
     Dates: start: 20040524
  5. SEROQUEL [Suspect]
     Route: 048
     Dates: start: 20040713
  6. SEROQUEL [Suspect]
     Route: 048
     Dates: start: 20050112
  7. TRAZODONE [Concomitant]
     Dosage: 150 MG HS PM
     Dates: start: 20030711
  8. EFFEXOR [Concomitant]
     Dates: start: 20030711
  9. WELLBUTRIN [Concomitant]
     Dates: start: 20030711
  10. ADVAIR HFA [Concomitant]
     Dosage: 50/250 TWO TIMES A DAY
     Dates: start: 20030711
  11. ALBUTEROL [Concomitant]
     Dosage: 2 PUFF PM
     Dates: start: 20030711
  12. DARVOCET [Concomitant]
     Dosage: 4-6 PM
     Dates: start: 20030711
  13. NEURONTIN [Concomitant]
     Dates: start: 20030711
  14. PRINIVIL [Concomitant]
     Dates: start: 20030711

REACTIONS (6)
  - ANXIETY [None]
  - DEHYDRATION [None]
  - HYPOGLYCAEMIA [None]
  - NEPHROLITHIASIS [None]
  - POST-TRAUMATIC STRESS DISORDER [None]
  - TYPE 2 DIABETES MELLITUS [None]
